FAERS Safety Report 5160318-4 (Version None)
Quarter: 2006Q4

REPORT INFORMATION
  Report Type: 
  Country: None (occurrence: None)
  Receive Date: 20061121
  Receipt Date: 20061105
  Transmission Date: 20070319
  Serious: Yes (Other)
  Sender: FDA-Public Use
  Company Number: 2006136125

PATIENT
  Age: 64 Year
  Sex: Female
  Weight: 45.3597 kg

DRUGS (8)
  1. CHANTIX [Suspect]
     Indication: SMOKING CESSATION THERAPY
     Dosage: ORAL
     Route: 048
     Dates: start: 20061001, end: 20061114
  2. DIFLUCAN [Suspect]
     Indication: SMOKING CESSATION THERAPY
     Dosage: ORAL
     Route: 048
     Dates: start: 20061001, end: 20061104
  3. INFLUENZA VACCINE (INFLUENZA VACCINE) [Suspect]
     Dates: start: 20060101, end: 20060101
  4. PROZAC [Concomitant]
  5. KLONOPIN [Concomitant]
  6. TAMOXIFEN CITRATE [Concomitant]
  7. ADVIL [Concomitant]
  8. TYLENOL [Concomitant]

REACTIONS (7)
  - CANDIDIASIS [None]
  - DRUG EFFECT DECREASED [None]
  - DRY MOUTH [None]
  - ORAL DISCOMFORT [None]
  - TONGUE BLACK HAIRY [None]
  - TONGUE BLISTERING [None]
  - VACCINATION COMPLICATION [None]
